FAERS Safety Report 18067254 (Version 1)
Quarter: 2020Q3

REPORT INFORMATION
  Report Type: Spontaneous
  Country: FR (occurrence: FR)
  Receive Date: 20200724
  Receipt Date: 20200724
  Transmission Date: 20201103
  Serious: Yes (Congenital Anomaly, Other)
  Sender: FDA-Public Use
  Company Number: FR-MYLANLABS-2020M1066148

PATIENT
  Sex: Male

DRUGS (1)
  1. VALPROIC ACID. [Suspect]
     Active Substance: VALPROIC ACID
     Indication: PRODUCT USED FOR UNKNOWN INDICATION
     Dosage: UNK
     Route: 064
     Dates: start: 198805, end: 19890302

REACTIONS (16)
  - Elbow deformity [Unknown]
  - Withdrawal syndrome [Unknown]
  - Intellectual disability [Unknown]
  - Spinal deformity [Unknown]
  - Tooth malformation [Unknown]
  - Visual impairment [Unknown]
  - Oropharyngeal discomfort [Unknown]
  - Nasal disorder [Unknown]
  - Psychomotor retardation [Unknown]
  - Foetal exposure during pregnancy [Unknown]
  - Dysmorphism [Unknown]
  - Arnold-Chiari malformation [Unknown]
  - Limb malformation [Unknown]
  - Language disorder [Unknown]
  - Ear disorder [Unknown]
  - Dyspepsia [Unknown]

NARRATIVE: CASE EVENT DATE: 19890302
